FAERS Safety Report 6134838-X (Version None)
Quarter: 2009Q1

REPORT INFORMATION
  Report Type: 
  Country: None (occurrence: None)
  Receive Date: 20090327
  Receipt Date: 20090324
  Transmission Date: 20090719
  Serious: Yes (Death)
  Sender: FDA-Public Use
  Company Number: JP-NOVOPROD-285583

PATIENT
  Sex: Male
  Weight: 57 kg

DRUGS (3)
  1. LEVEMIR [Suspect]
     Indication: TYPE 2 DIABETES MELLITUS
     Dosage: 10 IU, QD
     Route: 058
     Dates: start: 20080912
  2. NOVOLOG [Concomitant]
     Indication: TYPE 2 DIABETES MELLITUS
     Dosage: 24 IU, QD
     Route: 058
     Dates: start: 20080912
  3. GOSHAJINKIGAN [Concomitant]
     Indication: DIABETIC NEUROPATHY
     Dosage: 7.5 MG, QD
     Route: 048
     Dates: start: 20090206

REACTIONS (1)
  - CARDIO-RESPIRATORY ARREST [None]
